FAERS Safety Report 20921041 (Version 1)
Quarter: 2022Q2

REPORT INFORMATION
  Report Type: Spontaneous
  Country: US (occurrence: US)
  Receive Date: 20220606
  Receipt Date: 20220606
  Transmission Date: 20220720
  Serious: No
  Sender: FDA-Public Use
  Company Number: US-CELGENE-USA-20211000204

PATIENT
  Age: 68 Year
  Sex: Female
  Weight: 72.574 kg

DRUGS (2)
  1. POMALYST [Suspect]
     Active Substance: POMALIDOMIDE
     Indication: Plasma cell myeloma
     Dosage: FREQUENCY- 1 CAPSULE FOR 21 DAYS ON AND 7 DAYS OFF, THEN REPEAT.
     Route: 048
     Dates: start: 20210217
  2. POMALYST [Suspect]
     Active Substance: POMALIDOMIDE
     Dosage: 2 MILLIGRAM
     Route: 048
     Dates: start: 20210217

REACTIONS (3)
  - Sinusitis [Unknown]
  - Bronchitis [Recovered/Resolved]
  - Bronchitis [Unknown]

NARRATIVE: CASE EVENT DATE: 20210101
